FAERS Safety Report 16982369 (Version 1)
Quarter: 2019Q4

REPORT INFORMATION
  Report Type: Spontaneous
  Country: SK (occurrence: SK)
  Receive Date: 20191101
  Receipt Date: 20191101
  Transmission Date: 20200122
  Serious: Yes (Death)
  Sender: FDA-Public Use
  Company Number: SK-ROCHE-2450530

PATIENT
  Sex: Male

DRUGS (9)
  1. SPIRIVA [Concomitant]
     Active Substance: TIOTROPIUM BROMIDE MONOHYDRATE
  2. WARFARIN [Concomitant]
     Active Substance: WARFARIN
  3. FURON [FUROSEMIDE] [Concomitant]
  4. ATROVENT [Concomitant]
     Active Substance: IPRATROPIUM BROMIDE
  5. ESBRIET [Suspect]
     Active Substance: PIRFENIDONE
     Indication: IDIOPATHIC PULMONARY FIBROSIS
     Dosage: AT THE BEGINNING 3 X 3 CAPSULES, GRADUAL DOWN TITRATION TO 3 X 1 CAPS DUE TO DRUG ADVERSE EFFECT
     Route: 048
     Dates: start: 20170801, end: 201805
  6. BETALOC ZOK [Concomitant]
     Active Substance: METOPROLOL SUCCINATE
  7. GOPTEN [Concomitant]
     Active Substance: TRANDOLAPRIL
  8. KALDYUM [Concomitant]
     Active Substance: POTASSIUM CHLORIDE
  9. HELICID [OMEPRAZOLE] [Concomitant]

REACTIONS (3)
  - Weight decreased [Unknown]
  - Death [Fatal]
  - Decreased appetite [Unknown]
